FAERS Safety Report 6549409-0 (Version None)
Quarter: 2010Q1

REPORT INFORMATION
  Report Type: 
  Country: None (occurrence: None)
  Receive Date: 20100125
  Receipt Date: 20100120
  Transmission Date: 20100710
  Serious: Yes (Death, Other)
  Sender: FDA-Public Use
  Company Number: PHHY2010AT03115

PATIENT
  Sex: Male

DRUGS (38)
  1. LEPONEX [Suspect]
     Dosage: 100 MG, UNK
     Dates: start: 20091125
  2. LEPONEX [Suspect]
     Dosage: 300 MG, UNK
     Dates: start: 20091126, end: 20091201
  3. LEPONEX [Suspect]
     Dosage: 250 MG, UNK
     Dates: start: 20091202
  4. LEPONEX [Suspect]
     Dosage: 250 MG, UNK
     Dates: start: 20091203, end: 20091213
  5. LEPONEX [Suspect]
     Dosage: 200 MG, UNK
     Dates: start: 20091214, end: 20091215
  6. CIPRALEX [Concomitant]
     Dosage: UNK
     Dates: start: 20081201, end: 20091215
  7. ABILIFY [Concomitant]
     Dosage: UNK
     Dates: start: 20080501, end: 20091030
  8. SEROQUEL [Concomitant]
     Dosage: 300 MG, UNK
     Dates: start: 20080801, end: 20090601
  9. SEROQUEL [Concomitant]
     Dosage: 200 MG, UNK
     Dates: start: 20090601, end: 20091013
  10. SEROQUEL [Concomitant]
     Dosage: 400 MG, UNK
     Dates: start: 20091014, end: 20091022
  11. SEROQUEL [Concomitant]
     Dosage: 500 MG, UNK
     Dates: start: 20091023, end: 20091028
  12. SEROQUEL [Concomitant]
     Dosage: 800 MG, UNK
     Dates: start: 20091001, end: 20091117
  13. SEROQUEL [Concomitant]
     Dosage: 700 MG, UNK
     Dates: start: 20091118, end: 20091125
  14. SEROQUEL [Concomitant]
     Dosage: 600 MG, UNK
     Dates: start: 20091126
  15. SEROQUEL [Concomitant]
     Dosage: 500 MG, UNK
     Dates: start: 20091127
  16. SEROQUEL [Concomitant]
     Dosage: 400 MG, UNK
     Dates: start: 20091128
  17. SEROQUEL [Concomitant]
     Dosage: 300 MG, UNK
     Dates: start: 20091129
  18. SEROQUEL [Concomitant]
     Dosage: 200 MG, UNK
     Dates: start: 20091130
  19. SEROQUEL [Concomitant]
     Dosage: 100 MG, UNK
     Dates: start: 20091201
  20. ARICEPT [Concomitant]
     Dosage: UNK
     Dates: start: 20091118, end: 20091215
  21. DITROPAN [Concomitant]
     Dosage: 10 MG, UNK
     Dates: start: 20080801, end: 20091215
  22. DEPAKENE [Concomitant]
     Dosage: 600 MG, UNK
     Dates: start: 20081206, end: 20091028
  23. DEPAKENE [Concomitant]
     Dosage: 450 MG, UNK
     Dates: start: 20091029
  24. DEPAKENE [Concomitant]
     Dosage: 300 MG, UNK
     Dates: start: 20091030, end: 20091103
  25. DEPAKENE [Concomitant]
     Dosage: 150 MG, UNK
     Dates: start: 20091104
  26. MADOPAR [Concomitant]
     Dosage: 300 MG, UNK
     Dates: start: 20091013, end: 20091017
  27. MADOPAR [Concomitant]
     Dosage: 600 MG, UNK
     Dates: start: 20091018, end: 20091102
  28. MADOPAR [Concomitant]
     Dosage: 800 MG, UNK
     Dates: start: 20091103, end: 20091116
  29. MADOPAR [Concomitant]
     Dosage: 600 MG, UNK
     Dates: start: 20091117, end: 20091215
  30. MADOPAR CR [Concomitant]
     Dosage: 100 MG, UNK
     Dates: start: 20091218, end: 20091225
  31. ASPIRIN [Concomitant]
     Dosage: 100 MG, UNK
     Dates: start: 20080801, end: 20091215
  32. GLUCOPHAGE [Concomitant]
     Dosage: 500 MG, UNK
     Dates: start: 19960101, end: 20091210
  33. GLUCOPHAGE [Concomitant]
     Dosage: 850 MG, UNK
     Dates: start: 20091211, end: 20091215
  34. AMARYL [Concomitant]
     Dosage: 3 MG, UNK
     Dates: start: 20000101, end: 20091104
  35. AMARYL [Concomitant]
     Dosage: 1 MG, UNK
     Dates: start: 20091105, end: 20091110
  36. TRITAZIDE [Concomitant]
     Dosage: 7.5 MG, UNK
     Dates: start: 20080601, end: 20091103
  37. TRITAZIDE [Concomitant]
     Dosage: 5 MG, UNK
     Dates: start: 20091104, end: 20091215
  38. PANTOPRAZOLE [Concomitant]
     Dosage: 20 MG, UNK
     Dates: start: 20091006, end: 20091215

REACTIONS (12)
  - ABDOMINAL PAIN [None]
  - ANTIPSYCHOTIC DRUG LEVEL INCREASED [None]
  - ASPIRATION [None]
  - BLOOD CREATININE INCREASED [None]
  - BLOOD PRESSURE INCREASED [None]
  - BLOOD SODIUM DECREASED [None]
  - ENTEROCOLITIS HAEMORRHAGIC [None]
  - ILEUS [None]
  - MOANING [None]
  - MYOCARDIAL INFARCTION [None]
  - VOMITING [None]
  - WHITE BLOOD CELL COUNT INCREASED [None]
